FAERS Safety Report 17163934 (Version 7)
Quarter: 2020Q2

REPORT INFORMATION
  Report Type: Report from Study
  Country: JP (occurrence: JP)
  Receive Date: 20191217
  Receipt Date: 20200618
  Transmission Date: 20200713
  Serious: Yes (Death, Hospitalization)
  Sender: FDA-Public Use
  Company Number: JP-EISAI MEDICAL RESEARCH-EC-2019-067087

PATIENT
  Age: 74 Year
  Sex: Male
  Weight: 65 kg

DRUGS (17)
  1. BAYASPIRIN [Concomitant]
     Active Substance: ASPIRIN
     Route: 048
  2. ALBUMIN [Concomitant]
     Active Substance: ALBUMIN HUMAN
     Route: 041
  3. ARGAMATE [Concomitant]
     Active Substance: CALCIUM POLYSTYRENE SULFONATE
     Route: 048
  4. FERROUS CITRATE NA [Concomitant]
     Active Substance: SODIUM FERROUS CITRATE
     Route: 048
  5. ALDACTONE A [Concomitant]
     Active Substance: SPIRONOLACTONE
     Route: 048
  6. TSUMURA JUZENTAIHOTO [Concomitant]
     Route: 065
  7. LENVIMA [Suspect]
     Active Substance: LENVATINIB
     Route: 048
     Dates: start: 20190122, end: 20190124
  8. ADALAT CC [Concomitant]
     Active Substance: NIFEDIPINE
     Route: 048
  9. AZILVA [Concomitant]
     Active Substance: AZILSARTAN KAMEDOXOMIL
     Route: 048
  10. RABEPRAZOLE NA [Concomitant]
     Active Substance: RABEPRAZOLE SODIUM
     Route: 048
  11. LASIX [Concomitant]
     Active Substance: FUROSEMIDE
     Route: 048
  12. AMINOLEBAN EN [Concomitant]
     Active Substance: UNSPECIFIED INGREDIENT
     Route: 048
  13. FEBURIC [Concomitant]
     Active Substance: FEBUXOSTAT
     Route: 048
  14. NOVORAPID [Concomitant]
     Active Substance: INSULIN ASPART
     Route: 058
  15. LENVIMA [Suspect]
     Active Substance: LENVATINIB
     Indication: HEPATOCELLULAR CARCINOMA
     Route: 048
     Dates: start: 20181227, end: 20190112
  16. VEGIN [Concomitant]
     Route: 061
  17. SAMSCA [Concomitant]
     Active Substance: TOLVAPTAN
     Route: 048

REACTIONS (2)
  - Malignant neoplasm progression [Fatal]
  - Ascites [Not Recovered/Not Resolved]

NARRATIVE: CASE EVENT DATE: 20190112
